FAERS Safety Report 25264049 (Version 1)
Quarter: 2025Q2

REPORT INFORMATION
  Report Type: Report from Study
  Country: US (occurrence: US)
  Receive Date: 20250502
  Receipt Date: 20250502
  Transmission Date: 20250716
  Serious: No
  Sender: DR REDDYS
  Company Number: US-DRL-USA-USA/2025/04/006017

PATIENT
  Sex: Female
  Weight: 34.12 kg

DRUGS (2)
  1. JAVYGTOR [Suspect]
     Active Substance: SAPROPTERIN DIHYDROCHLORIDE
     Indication: Phenylketonuria
     Dosage: MIX AND DRINK ONE 100 MG PACKET WITH ONE 500 MG PACKET FOR A TOTAL DOSE OF 600 MG. DISSOLVE IN WATER
     Route: 048
  2. JAVYGTOR [Suspect]
     Active Substance: SAPROPTERIN DIHYDROCHLORIDE
     Indication: Phenylketonuria
     Dosage: MIX AND DRINK ONE 100 MG PACKET WITH ONE 500 MG PACKET FOR A TOTAL DOSE OF 600 MG. DISSOLVE IN WATER
     Route: 048

REACTIONS (2)
  - Gastroenteritis [Recovering/Resolving]
  - Product dose omission issue [Unknown]
